FAERS Safety Report 4547065-4 (Version None)
Quarter: 2005Q1

REPORT INFORMATION
  Report Type: 
  Country: None (occurrence: None)
  Receive Date: 20050107
  Receipt Date: 20041229
  Transmission Date: 20050727
  Serious: Yes (Hospitalization)
  Sender: FDA-Public Use
  Company Number: US-JNJFOC-20050100057

PATIENT
  Sex: Male
  Weight: 93.9 kg

DRUGS (21)
  1. INFLIXIMAB [Suspect]
     Route: 042
  2. INFLIXIMAB [Suspect]
     Route: 042
  3. INFLIXIMAB [Suspect]
     Route: 042
  4. INFLIXIMAB [Suspect]
     Route: 042
  5. INFLIXIMAB [Suspect]
     Indication: CROHN'S DISEASE
     Route: 042
  6. MESALAMINE [Suspect]
     Indication: CROHN'S DISEASE
  7. NARCOTIC ANALGESICS [Suspect]
     Indication: CROHN'S DISEASE
  8. MULTI-VITAMIN [Suspect]
  9. MULTI-VITAMIN [Suspect]
  10. MULTI-VITAMIN [Suspect]
  11. MULTI-VITAMIN [Suspect]
  12. MULTI-VITAMIN [Suspect]
  13. MULTI-VITAMIN [Suspect]
  14. MULTI-VITAMIN [Suspect]
  15. MULTI-VITAMIN [Suspect]
     Indication: CROHN'S DISEASE
  16. MERCAPTOPURINE [Suspect]
     Indication: CROHN'S DISEASE
  17. ACETAMINOPHEN [Concomitant]
  18. ACETAMINOPHEN [Concomitant]
     Indication: PROPHYLAXIS
  19. ANTI-HISTAMINE TAB [Concomitant]
  20. ANTI-HISTAMINE TAB [Concomitant]
  21. ANTI-HISTAMINE TAB [Concomitant]
     Indication: PROPHYLAXIS

REACTIONS (1)
  - POLYARTHRITIS [None]
